FAERS Safety Report 9622200 (Version 1)
Quarter: 2013Q4

REPORT INFORMATION
  Report Type: Spontaneous
  Country: US (occurrence: None)
  Receive Date: 20131010
  Receipt Date: 20131010
  Transmission Date: 20140711
  Serious: Yes (Other)
  Sender: FDA-Public Use
  Company Number: 001604544A

PATIENT
  Sex: Female

DRUGS (5)
  1. PROACTIV PLUS SKIN SMOOTHING EXFOLIATOR [Suspect]
     Indication: ACNE
     Dosage: TWICE DAILY DERMAL
     Dates: start: 20130914, end: 20130917
  2. PORE TARGETING TREATMENT [Suspect]
     Indication: ACNE
     Dosage: TWICE DAILY DERMAL
     Dates: start: 20130914, end: 20130917
  3. PROACTIV PLUS COMPLEXION PERFECTING HYDRATOR [Suspect]
     Indication: ACNE
     Dosage: TWICE DAILY DERMAL
     Dates: start: 20130914, end: 20130917
  4. MARK FADING PADS [Suspect]
     Indication: ACNE
     Dosage: TWICE DAILY DERMAL
     Dates: start: 20130914, end: 20130917
  5. PROACTIV PLUS SKIN PURIFYING MASK [Suspect]
     Indication: ACNE
     Dosage: TWICE DAILY DERMAL
     Dates: start: 20130914, end: 20130914

REACTIONS (4)
  - Swelling face [None]
  - Eye swelling [None]
  - Local swelling [None]
  - Hypersensitivity [None]
